FAERS Safety Report 26051233 (Version 1)
Quarter: 2025Q4

REPORT INFORMATION
  Report Type: Spontaneous
  Country: CN (occurrence: CN)
  Receive Date: 20251117
  Receipt Date: 20251117
  Transmission Date: 20260118
  Serious: Yes (Life-Threatening, Hospitalization, Other)
  Sender: ABBVIE
  Company Number: CN-ABBVIE-6549887

PATIENT
  Age: 74 Year
  Sex: Male

DRUGS (5)
  1. VENETOCLAX [Suspect]
     Active Substance: VENETOCLAX
     Indication: Myelosuppression
     Route: 048
     Dates: start: 20251021, end: 20251021
  2. VENETOCLAX [Suspect]
     Active Substance: VENETOCLAX
     Indication: Myelosuppression
     Route: 048
     Dates: start: 20251023, end: 20251101
  3. VENETOCLAX [Suspect]
     Active Substance: VENETOCLAX
     Indication: Myelosuppression
     Route: 048
     Dates: start: 20251022, end: 20251022
  4. AZACITIDINE [Concomitant]
     Active Substance: AZACITIDINE
     Indication: Acute myeloid leukaemia
     Route: 058
     Dates: start: 20251021
  5. STERILE WATER [Concomitant]
     Active Substance: WATER
     Indication: Acute myeloid leukaemia
     Dates: start: 20251021

REACTIONS (7)
  - Myelosuppression [Recovering/Resolving]
  - Neutrophil count decreased [Recovering/Resolving]
  - Asthenia [Unknown]
  - Inflammatory marker increased [Unknown]
  - Pyrexia [Unknown]
  - White blood cell count decreased [Recovering/Resolving]
  - Platelet count decreased [Recovering/Resolving]

NARRATIVE: CASE EVENT DATE: 20251101
